FAERS Safety Report 4913883-3 (Version None)
Quarter: 2006Q1

REPORT INFORMATION
  Report Type: 
  Country: None (occurrence: None)
  Receive Date: 20060216
  Receipt Date: 20051026
  Transmission Date: 20060701
  Serious: Yes (Hospitalization, Disabling)
  Sender: FDA-Public Use
  Company Number: US-MERCK-0510USA09467

PATIENT
  Age: 39 Year
  Sex: Male
  Weight: 88 kg

DRUGS (1)
  1. VIOXX [Suspect]
     Indication: ARTHRALGIA
     Route: 048
     Dates: start: 20031124, end: 20040308

REACTIONS (9)
  - ANXIETY [None]
  - ARTHROPATHY [None]
  - CHEST PAIN [None]
  - DEPRESSION [None]
  - HERNIA [None]
  - JOINT EFFUSION [None]
  - KNEE OPERATION [None]
  - MYOCARDIAL INFARCTION [None]
  - SHOULDER OPERATION [None]
